FAERS Safety Report 18049389 (Version 1)
Quarter: 2020Q3

REPORT INFORMATION
  Report Type: Spontaneous
  Country: BR (occurrence: BR)
  Receive Date: 20200721
  Receipt Date: 20200721
  Transmission Date: 20201103
  Serious: Yes (Hospitalization, Other)
  Sender: FDA-Public Use
  Company Number: BR-GLAXOSMITHKLINE-BR2019AMR201649

PATIENT
  Sex: Female
  Weight: 77 kg

DRUGS (4)
  1. AMOXYCILLIN + CLAVULANIC ACID [Suspect]
     Active Substance: AMOXICILLIN\CLAVULANIC ACID
     Indication: PRODUCT USED FOR UNKNOWN INDICATION
     Dosage: UNK
  2. CIPROFLOXACIN. [Suspect]
     Active Substance: CIPROFLOXACIN
     Indication: PRODUCT USED FOR UNKNOWN INDICATION
     Dosage: UNK
  3. BENLYSTA [Suspect]
     Active Substance: BELIMUMAB
     Indication: SYSTEMIC LUPUS ERYTHEMATOSUS
     Dosage: UNK
     Dates: start: 20191015
  4. CEPHALEXIN. [Suspect]
     Active Substance: CEPHALEXIN
     Indication: PRODUCT USED FOR UNKNOWN INDICATION
     Dosage: UNK

REACTIONS (10)
  - Urinary tract infection [Recovering/Resolving]
  - Drug ineffective [Unknown]
  - Skin odour abnormal [Unknown]
  - Headache [Unknown]
  - Rash pustular [Unknown]
  - Systemic lupus erythematosus [Unknown]
  - Infection [Unknown]
  - Nail infection [Unknown]
  - Product dose omission issue [Unknown]
  - Alopecia [Recovering/Resolving]
